FAERS Safety Report 7902110-0 (Version None)
Quarter: 2011Q4

REPORT INFORMATION
  Report Type: 
  Country: None (occurrence: None)
  Receive Date: 20111107
  Receipt Date: 20111107
  Transmission Date: 20120403
  Serious: Yes (Death, Hospitalization)
  Sender: FDA-Public Use
  Company Number: None

PATIENT
  Sex: Male
  Weight: 77 kg

DRUGS (2)
  1. DAUNORUBICIN HCL [Suspect]
     Dosage: 345 MG
     Dates: end: 20111009
  2. CYTARABINE [Suspect]
     Dosage: 1365 MG
     Dates: end: 20111014

REACTIONS (3)
  - BLOOD CULTURE POSITIVE [None]
  - PNEUMONIA ASPIRATION [None]
  - RESPIRATORY DISORDER [None]
